FAERS Safety Report 13113643 (Version 2)
Quarter: 2017Q2

REPORT INFORMATION
  Report Type: Spontaneous
  Country: US (occurrence: US)
  Receive Date: 20170113
  Receipt Date: 20170405
  Transmission Date: 20170830
  Serious: No
  Sender: FDA-Public Use
  Company Number: US-ELI_LILLY_AND_COMPANY-US201607006387

PATIENT
  Sex: Female
  Weight: 67 kg

DRUGS (6)
  1. CYMBALTA [Suspect]
     Active Substance: DULOXETINE HYDROCHLORIDE
     Dosage: 120 MG, QD
     Route: 048
  2. CYMBALTA [Suspect]
     Active Substance: DULOXETINE HYDROCHLORIDE
     Indication: DEPRESSION
     Dosage: 30 MG, QD
     Route: 065
     Dates: start: 20051017
  3. CYMBALTA [Suspect]
     Active Substance: DULOXETINE HYDROCHLORIDE
     Dosage: 90 MG, QD
     Route: 048
  4. CYMBALTA [Suspect]
     Active Substance: DULOXETINE HYDROCHLORIDE
     Dosage: 30 MG, QD
     Route: 048
     Dates: start: 20090126
  5. CYMBALTA [Suspect]
     Active Substance: DULOXETINE HYDROCHLORIDE
     Dosage: 60 MG, QD
     Route: 048
  6. CYMBALTA [Suspect]
     Active Substance: DULOXETINE HYDROCHLORIDE
     Dosage: 30 MG, QD
     Route: 048
     Dates: start: 20090319, end: 20090527

REACTIONS (16)
  - Dizziness [Unknown]
  - Headache [Unknown]
  - Insomnia [Unknown]
  - Dysphoria [Unknown]
  - Agitation [Unknown]
  - Drug withdrawal syndrome [Unknown]
  - Anxiety [Unknown]
  - Fatigue [Unknown]
  - Paraesthesia [Unknown]
  - Nausea [Unknown]
  - Irritability [Unknown]
  - Tinnitus [Unknown]
  - Confusional state [Unknown]
  - Affect lability [Unknown]
  - Tremor [Unknown]
  - Hyperhidrosis [Unknown]
